FAERS Safety Report 25519361 (Version 2)
Quarter: 2025Q3

REPORT INFORMATION
  Report Type: Spontaneous
  Country: US (occurrence: US)
  Receive Date: 20250704
  Receipt Date: 20250711
  Transmission Date: 20251021
  Serious: Yes (Hospitalization)
  Sender: SAREPTA THERAPEUTICS
  Company Number: US-SAREPTA THERAPEUTICS INC.-SRP2025-006174

PATIENT
  Sex: Male

DRUGS (1)
  1. ELEVIDYS [Suspect]
     Active Substance: DELANDISTROGENE MOXEPARVOVEC-ROKL
     Indication: Duchenne muscular dystrophy
     Dates: start: 20250501, end: 20250501

REACTIONS (5)
  - Asthenia [Unknown]
  - Gait disturbance [Unknown]
  - Dysphagia [Unknown]
  - Blood creatine phosphokinase increased [Unknown]
  - Myocarditis [Unknown]
